FAERS Safety Report 23128745 (Version 1)
Quarter: 2023Q4

REPORT INFORMATION
  Report Type: Spontaneous
  Country: US (occurrence: US)
  Receive Date: 20231031
  Receipt Date: 20231031
  Transmission Date: 20240110
  Serious: Yes (Hospitalization, Other)
  Sender: FDA-Public Use
  Company Number: US-WOCKHARDT LIMITED-2023WLD000109

PATIENT
  Age: 30 Year
  Sex: Female

DRUGS (1)
  1. BUPROPION [Suspect]
     Active Substance: BUPROPION
     Indication: Product used for unknown indication
     Dosage: UNK
     Route: 065

REACTIONS (5)
  - Metabolic acidosis [Recovered/Resolved]
  - Overdose [Unknown]
  - Tachycardia [Recovered/Resolved]
  - Generalised tonic-clonic seizure [Unknown]
  - Electrocardiogram QT prolonged [Not Recovered/Not Resolved]
